FAERS Safety Report 6800587 (Version 14)
Quarter: 2015Q2

REPORT INFORMATION
  Report Type: Spontaneous
  Country: JP (occurrence: JP)
  Receive Date: 20081030
  Receipt Date: 20150408
  Transmission Date: 20150821
  Serious: Yes (Other)
  Sender: FDA-Public Use
  Company Number: JP-B.I. PHARMACEUTICALS,INC./RIDGEFIELD-2008-BP-16441NB

PATIENT
  Age: 32 Year
  Sex: Male
  Weight: 57 kg

DRUGS (33)
  1. MICARDIS [Suspect]
     Active Substance: TELMISARTAN
     Dosage: 80 MG
     Route: 048
     Dates: start: 20070802
  2. PROGRAF [Suspect]
     Active Substance: TACROLIMUS\TACROLIMUS ANHYDROUS
     Dosage: 2 MG
     Route: 048
     Dates: start: 20070612
  3. PROGRAF [Suspect]
     Active Substance: TACROLIMUS\TACROLIMUS ANHYDROUS
     Dosage: 1.5 MG
     Route: 048
     Dates: start: 20070612
  4. PREDNISOLONE. [Suspect]
     Active Substance: PREDNISOLONE
     Dosage: 16 MG
     Route: 048
     Dates: start: 20071220
  5. MICARDIS [Suspect]
     Active Substance: TELMISARTAN
     Dosage: 40 MG
     Route: 048
     Dates: start: 20070624
  6. PREDNISOLONE. [Suspect]
     Active Substance: PREDNISOLONE
     Dosage: 11 MG
     Route: 048
     Dates: start: 20081009
  7. PREDNISOLONE. [Suspect]
     Active Substance: PREDNISOLONE
     Dosage: 10 MG
     Route: 048
     Dates: start: 20090625
  8. METHYCOBAL [Concomitant]
     Active Substance: METHYLCOBALAMIN
     Indication: PRODUCT USED FOR UNKNOWN INDICATION
     Dosage: 1500 MCG
     Route: 048
     Dates: start: 20070616, end: 20080116
  9. PREDNISOLONE. [Suspect]
     Active Substance: PREDNISOLONE
     Dosage: 14 MG
     Route: 048
     Dates: start: 20080313
  10. SAWACILLIN [Concomitant]
     Active Substance: AMOXICILLIN
     Indication: TOOTH EXTRACTION
  11. MICARDIS [Suspect]
     Active Substance: TELMISARTAN
     Indication: HYPERTENSION
     Dosage: 20 MG
     Route: 048
     Dates: start: 20070608
  12. PREDNISOLONE. [Suspect]
     Active Substance: PREDNISOLONE
     Dosage: 45 MG
     Route: 048
     Dates: start: 20070614
  13. PREDNISOLONE. [Suspect]
     Active Substance: PREDNISOLONE
     Dosage: 35 MG
     Route: 048
     Dates: start: 20070704
  14. PREDNISOLONE. [Suspect]
     Active Substance: PREDNISOLONE
     Dosage: 12 MG
     Route: 048
     Dates: start: 20080814
  15. WARFARIN [Concomitant]
     Active Substance: WARFARIN
     Indication: PRODUCT USED FOR UNKNOWN INDICATION
     Dosage: 2 MG
     Route: 048
  16. PREDNISOLONE. [Suspect]
     Active Substance: PREDNISOLONE
     Indication: LUPUS NEPHRITIS
     Dosage: 50 MG
     Route: 048
     Dates: start: 20070531
  17. PREDNISOLONE. [Suspect]
     Active Substance: PREDNISOLONE
     Dosage: 18 MG
     Route: 048
     Dates: start: 20071121
  18. ZANTAC [Concomitant]
     Active Substance: RANITIDINE HYDROCHLORIDE
     Indication: PROPHYLAXIS
     Dosage: 300 MG
     Route: 048
  19. PREDNISOLONE. [Suspect]
     Active Substance: PREDNISOLONE
     Dosage: 40 MG
     Route: 048
     Dates: start: 20070621
  20. PREDNISOLONE. [Suspect]
     Active Substance: PREDNISOLONE
     Dosage: 27.5 MG
     Route: 048
     Dates: start: 20070801
  21. PREDNISOLONE. [Suspect]
     Active Substance: PREDNISOLONE
     Dosage: 16 MG
     Route: 048
     Dates: start: 20071220
  22. PREDNISOLONE. [Suspect]
     Active Substance: PREDNISOLONE
     Dosage: 13 MG
     Route: 048
     Dates: start: 20080613
  23. PREDNISOLONE. [Suspect]
     Active Substance: PREDNISOLONE
     Dosage: 9 MG
     Route: 048
     Dates: start: 20130117
  24. PREDNISOLONE. [Suspect]
     Active Substance: PREDNISOLONE
     Dosage: 25 MG
     Route: 048
     Dates: start: 20070829
  25. ALFAROL [Concomitant]
     Active Substance: ALFACALCIDOL
     Indication: PROPHYLAXIS
     Dosage: 0.5 MCG
     Route: 048
  26. MEVALOTIN [Concomitant]
     Active Substance: PRAVASTATIN SODIUM
     Indication: PRODUCT USED FOR UNKNOWN INDICATION
     Dosage: 10 MG
     Route: 048
     Dates: start: 20070829
  27. PROGRAF [Suspect]
     Active Substance: TACROLIMUS\TACROLIMUS ANHYDROUS
     Indication: LUPUS NEPHRITIS
     Dosage: 1.5 MG
     Route: 048
     Dates: start: 20070531
  28. PREDNISOLONE. [Suspect]
     Active Substance: PREDNISOLONE
     Dosage: 30 MG
     Route: 048
     Dates: start: 20070718
  29. PREDNISOLONE. [Suspect]
     Active Substance: PREDNISOLONE
     Dosage: 22.5 MG
     Route: 048
     Dates: start: 20070926
  30. PREDNISOLONE. [Suspect]
     Active Substance: PREDNISOLONE
     Dosage: 20 MG
     Route: 048
     Dates: start: 20071023
  31. PREDNISOLONE. [Suspect]
     Active Substance: PREDNISOLONE
     Dosage: 15 MG
     Route: 048
     Dates: start: 20080117
  32. BONALON [Concomitant]
     Active Substance: ALENDRONATE SODIUM
     Indication: PROPHYLAXIS
     Dosage: 5 MG
     Route: 048
     Dates: end: 20120321
  33. SAWACILLIN [Concomitant]
     Active Substance: AMOXICILLIN
     Indication: INFECTION PROPHYLAXIS
     Dosage: 750 MG
     Route: 048
     Dates: start: 20120717, end: 20120801

REACTIONS (13)
  - Renal impairment [Not Recovered/Not Resolved]
  - White blood cell count increased [Recovered/Resolved]
  - Upper respiratory tract inflammation [Recovered/Resolved]
  - Influenza [Recovered/Resolved]
  - Upper respiratory tract inflammation [Recovered/Resolved]
  - Bronchitis [Recovered/Resolved]
  - Upper respiratory tract inflammation [Recovered/Resolved]
  - Oral candidiasis [Recovered/Resolved]
  - Herpes zoster [Recovered/Resolved]
  - Periodontal disease [Recovered/Resolved]
  - Upper respiratory tract inflammation [Recovered/Resolved]
  - Neoplasm skin [Recovered/Resolved]
  - Upper respiratory tract inflammation [Recovered/Resolved]

NARRATIVE: CASE EVENT DATE: 20070829
